FAERS Safety Report 7164664-4 (Version None)
Quarter: 2010Q4

REPORT INFORMATION
  Report Type: 
  Country: None (occurrence: None)
  Receive Date: 20101215
  Receipt Date: 20101203
  Transmission Date: 20110411
  Serious: Yes (Other)
  Sender: FDA-Public Use
  Company Number: US-MYLANLABS-2010S1022151

PATIENT
  Sex: Female

DRUGS (3)
  1. GABAPENTIN [Suspect]
     Indication: NEURALGIA
  2. AMITRIPTYLINE HCL [Suspect]
  3. MILNACIPRAN [Suspect]

REACTIONS (8)
  - CARDIAC DISORDER [None]
  - DRUG INEFFECTIVE [None]
  - MALAISE [None]
  - MUSCULOSKELETAL STIFFNESS [None]
  - NAUSEA [None]
  - NEURALGIA [None]
  - SOMNOLENCE [None]
  - TREMOR [None]
